FAERS Safety Report 10627934 (Version 3)
Quarter: 2014Q4

REPORT INFORMATION
  Report Type: Spontaneous
  Country: US (occurrence: US)
  Receive Date: 20141205
  Receipt Date: 20141218
  Transmission Date: 20150529
  Serious: Yes (Other)
  Sender: FDA-Public Use
  Company Number: US-BRISTOL-MYERS SQUIBB COMPANY-21392568

PATIENT
  Sex: Female

DRUGS (1)
  1. ABILIFY [Suspect]
     Active Substance: ARIPIPRAZOLE
     Dosage: UNK
     Dates: start: 2011, end: 20130918

REACTIONS (5)
  - Transient ischaemic attack [Unknown]
  - Type 2 diabetes mellitus [Unknown]
  - Hypoaesthesia [Recovered/Resolved]
  - Musculoskeletal pain [Recovered/Resolved]
  - Musculoskeletal stiffness [Recovered/Resolved]
